FAERS Safety Report 7283282-0 (Version None)
Quarter: 2011Q1

REPORT INFORMATION
  Report Type: 
  Country: None (occurrence: None)
  Receive Date: 20110209
  Receipt Date: 20110126
  Transmission Date: 20110831
  Serious: Yes (Other)
  Sender: FDA-Public Use
  Company Number: GR-CELGENEUS-066-20785-11012599

PATIENT
  Age: 71 Year
  Sex: Female

DRUGS (1)
  1. THALIDOMIDE [Suspect]
     Indication: ANGIODYSPLASIA
     Route: 048

REACTIONS (2)
  - FLUID RETENTION [None]
  - DYSPNOEA EXERTIONAL [None]
